FAERS Safety Report 12191488 (Version 2)
Quarter: 2016Q2

REPORT INFORMATION
  Report Type: Spontaneous
  Country: FR (occurrence: FR)
  Receive Date: 20160318
  Receipt Date: 20160517
  Transmission Date: 20160815
  Serious: Yes (Hospitalization)
  Sender: FDA-Public Use
  Company Number: FR-BAXTER-2016BAX011774

PATIENT
  Age: 24 Year
  Sex: Female

DRUGS (18)
  1. BLEOMYCIN [Suspect]
     Active Substance: BLEOMYCIN SULFATE
     Indication: HODGKIN^S DISEASE
     Dosage: D8 OF FIRST COURSE OF BEACOPP PROTOCOL
     Route: 065
  2. CORTANCYL [Concomitant]
     Active Substance: PREDNISONE
     Indication: PREMEDICATION
     Dosage: WITH FIRST COURSE
     Route: 065
  3. UROMITEXAN 5 G/50 ML, SOLUTION INJECTABLE POUR PERFUSION EN FLACON [Suspect]
     Active Substance: MESNA
     Dosage: SECOND COURSE OF BEACOPP PROTOCOL; FIRST INFUSION
     Route: 042
     Dates: start: 20160224
  4. ENDOXAN 1000 MG, POUDRE POUR SOLUTION INJECTABLE [Suspect]
     Active Substance: CYCLOPHOSPHAMIDE
     Indication: HODGKIN^S DISEASE
     Dosage: D1 OF FIRST COURSE OF BEACOPP PROTOCOL
     Route: 065
     Dates: start: 20160203
  5. PROCARBAZINE [Suspect]
     Active Substance: PROCARBAZINE
     Dosage: D1 TO D7 OF SECOND COURSE OF BEACOPP PROTOCOL; OVER 1 HOUR
     Route: 048
     Dates: start: 20160224
  6. CORTANCYL [Concomitant]
     Active Substance: PREDNISONE
     Dosage: WITH SECOND COURSE
     Route: 065
     Dates: start: 20160224
  7. UROMITEXAN 5 G/50 ML, SOLUTION INJECTABLE POUR PERFUSION EN FLACON [Suspect]
     Active Substance: MESNA
     Dosage: SECOND COURSE OF BEACOPP PROTOCOL; THIRD INFUSION
     Route: 042
     Dates: start: 20160225
  8. PROCARBAZINE [Suspect]
     Active Substance: PROCARBAZINE
     Indication: HODGKIN^S DISEASE
     Dosage: D1 TO D7 OF FIRST COURSE OF BEACOPP PROTOCOL
     Route: 065
     Dates: start: 20160203
  9. VINCRISTINE [Suspect]
     Active Substance: VINCRISTINE
     Indication: HODGKIN^S DISEASE
     Dosage: D8 OF FIRST COURSE OF BEACOPP PROTOCOL
     Route: 065
  10. UROMITEXAN 5 G/50 ML, SOLUTION INJECTABLE POUR PERFUSION EN FLACON [Suspect]
     Active Substance: MESNA
     Dosage: SECOND COURSE OF BEACOPP PROTOCOL; SECOND INFUSION
     Route: 042
     Dates: start: 20160225
  11. ENDOXAN 1000 MG, POUDRE POUR SOLUTION INJECTABLE [Suspect]
     Active Substance: CYCLOPHOSPHAMIDE
     Dosage: SECOND COURSE OF BEACOPP PROTOCOL
     Route: 042
     Dates: start: 20160224
  12. ETOPOSIDE. [Suspect]
     Active Substance: ETOPOSIDE
     Indication: HODGKIN^S DISEASE
     Dosage: D1 TO D3 OF FIRST COURSE OF BEACOPP PROTOCOL
     Route: 065
     Dates: start: 20160203
  13. ETOPOSIDE. [Suspect]
     Active Substance: ETOPOSIDE
     Dosage: SECOND COURSE OF BEACOPP PROTOCOL, OVER 1 HOUR
     Route: 042
     Dates: start: 20160224
  14. DOXORUBICIN HYDROCHLORIDE. [Suspect]
     Active Substance: DOXORUBICIN HYDROCHLORIDE
     Indication: HODGKIN^S DISEASE
     Dosage: D1 OF THE FIRST COURSE OF BEACOPP PROTOCOL
     Route: 065
     Dates: start: 20160203
  15. ZOPHREN [Concomitant]
     Active Substance: ONDANSETRON
     Indication: PREMEDICATION
     Dosage: WITH FIRST COURSE
     Route: 065
  16. UROMITEXAN 5 G/50 ML, SOLUTION INJECTABLE POUR PERFUSION EN FLACON [Suspect]
     Active Substance: MESNA
     Indication: HODGKIN^S DISEASE
     Dosage: D1 OF FIRST COURSE OF BEACOPP PROTOCOL
     Route: 065
     Dates: start: 20160203
  17. DOXORUBICIN HYDROCHLORIDE. [Suspect]
     Active Substance: DOXORUBICIN HYDROCHLORIDE
     Dosage: SECOND COURSE OF BEACOPP PROTOCOL, OVER 10 MINUTES
     Route: 042
     Dates: start: 20160224
  18. ZOPHREN [Concomitant]
     Active Substance: ONDANSETRON
     Dosage: WITH FIRST COURSE
     Route: 065
     Dates: start: 20160224

REACTIONS (7)
  - Angioedema [Recovered/Resolved]
  - Pyrexia [Recovered/Resolved]
  - Erythema [Recovered/Resolved]
  - Oxygen saturation decreased [Recovered/Resolved]
  - Tachycardia [Recovered/Resolved]
  - Pruritus [Recovered/Resolved]
  - Nausea [Recovered/Resolved]

NARRATIVE: CASE EVENT DATE: 20160225
